FAERS Safety Report 10021534 (Version 1)
Quarter: 2014Q1

REPORT INFORMATION
  Report Type: Spontaneous
  Country: AU (occurrence: None)
  Receive Date: 20140318
  Receipt Date: 20140318
  Transmission Date: 20141002
  Serious: Yes (Other)
  Sender: FDA-Public Use
  Company Number: None

PATIENT
  Age: 51 Year
  Sex: Female
  Weight: 61 kg

DRUGS (1)
  1. LATISSE 0.03% ALLERGAN [Suspect]
     Indication: MADAROSIS
     Dosage: ONE DROP OVER EACH EYE, ONCE DAILY
     Dates: start: 20140201, end: 20140203

REACTIONS (4)
  - Accidental exposure to product [None]
  - Eye infection [None]
  - Eye pain [None]
  - Ocular hyperaemia [None]
